FAERS Safety Report 8484457-5 (Version None)
Quarter: 2012Q3

REPORT INFORMATION
  Report Type: 
  Country: None (occurrence: None)
  Receive Date: 20120703
  Receipt Date: 20120628
  Transmission Date: 20120928
  Serious: Yes (Other)
  Sender: FDA-Public Use
  Company Number: PHHY2012BR056220

PATIENT
  Age: 63 Year
  Sex: Female

DRUGS (3)
  1. EXFORGE [Suspect]
     Indication: HYPERTENSION
     Dosage: 1 TABLET (80/5 MG) DAILY
  2. AMLODIPINE [Suspect]
     Dosage: 80/5 MG, UNK
  3. DIOVAN [Suspect]
     Indication: HYPERTENSION
     Dosage: 1 TABLET (80 MG) DAILY

REACTIONS (5)
  - PALPITATIONS [None]
  - MALAISE [None]
  - DYSPNOEA [None]
  - CHEST DISCOMFORT [None]
  - THROAT TIGHTNESS [None]
